FAERS Safety Report 6128387-2 (Version None)
Quarter: 2009Q1

REPORT INFORMATION
  Report Type: 
  Country: None (occurrence: None)
  Receive Date: 20090323
  Receipt Date: 20090320
  Transmission Date: 20090719
  Serious: Yes (Death)
  Sender: FDA-Public Use
  Company Number: US-ASTRAZENECA-2009UW07221

PATIENT
  Age: 32 Year
  Sex: Female
  Weight: 104.3 kg

DRUGS (3)
  1. SEROQUEL XR [Suspect]
     Route: 048
  2. METHADONE HCL [Concomitant]
     Indication: DEPENDENCE
  3. LYRICA [Concomitant]

REACTIONS (1)
  - DEATH [None]
